FAERS Safety Report 8125322-2 (Version None)
Quarter: 2012Q1

REPORT INFORMATION
  Report Type: 
  Country: None (occurrence: None)
  Receive Date: 20120209
  Receipt Date: 20120207
  Transmission Date: 20120608
  Serious: Yes (Hospitalization, Other)
  Sender: FDA-Public Use
  Company Number: US-VIIV HEALTHCARE LIMITED-A0941144A

PATIENT
  Sex: Male
  Weight: 1.1 kg

DRUGS (6)
  1. COMBIVIR [Suspect]
     Indication: ANTIRETROVIRAL THERAPY
     Dosage: 2TAB PER DAY
     Route: 064
     Dates: start: 20110317
  2. ALCOHOL [Concomitant]
  3. COCAINE [Suspect]
     Route: 064
  4. MARIJUANA [Suspect]
     Route: 064
  5. NICOTINE [Concomitant]
  6. KALETRA [Suspect]
     Indication: ANTIRETROVIRAL THERAPY
     Dosage: 4TAB PER DAY
     Route: 064
     Dates: start: 20110317

REACTIONS (4)
  - PREMATURE BABY [None]
  - GASTROINTESTINAL NECROSIS [None]
  - FOETAL EXPOSURE DURING PREGNANCY [None]
  - GASTROSCHISIS [None]
